FAERS Safety Report 23432717 (Version 1)
Quarter: 2024Q1

REPORT INFORMATION
  Report Type: Spontaneous
  Country: None (occurrence: US)
  Receive Date: 20240123
  Receipt Date: 20240123
  Transmission Date: 20240409
  Serious: No
  Sender: FDA-Public Use
  Company Number: US-Breckenridge Pharmaceutical, Inc.-2151796

PATIENT
  Sex: Female

DRUGS (1)
  1. RIVASTIGMINE TRANSDERMAL SYSTEM [Suspect]
     Active Substance: RIVASTIGMINE
     Route: 062

REACTIONS (5)
  - Pruritus [Unknown]
  - Dermatitis contact [Unknown]
  - Skin haemorrhage [Unknown]
  - Skin irritation [Unknown]
  - Product residue present [Unknown]
